FAERS Safety Report 17754979 (Version 2)
Quarter: 2020Q2

REPORT INFORMATION
  Report Type: Spontaneous
  Country: FR (occurrence: FR)
  Receive Date: 20200507
  Receipt Date: 20200514
  Transmission Date: 20200714
  Serious: Yes (Hospitalization)
  Sender: FDA-Public Use
  Company Number: FR-TEVA-2020-FR-1230796

PATIENT
  Age: 95 Year
  Sex: Female

DRUGS (7)
  1. KARDEGIC [Concomitant]
     Active Substance: ASPIRIN DL-LYSINE
  2. LEXOMIL 12 MG, COMPRIME [Concomitant]
     Active Substance: BROMAZEPAM
  3. RAMIPRIL. [Concomitant]
     Active Substance: RAMIPRIL
  4. PAROXETINE TEVA 20 MG, COMPRIME PELLICULE SECABLE [Suspect]
     Active Substance: PAROXETINE HYDROCHLORIDE
     Indication: PRODUCT USED FOR UNKNOWN INDICATION
     Dosage: 20 MG
     Route: 048
     Dates: start: 20200404, end: 20200404
  5. PAROXETINE MYLAN 20 MG, COMPRIME PELLICULE SECABLE [Suspect]
     Active Substance: PAROXETINE HYDROCHLORIDE
     Indication: PRODUCT USED FOR UNKNOWN INDICATION
     Dosage: 20 MG
     Route: 048
     Dates: end: 20200403
  6. TAHOR [Concomitant]
     Active Substance: ATORVASTATIN CALCIUM
  7. INIPOMP [Concomitant]
     Active Substance: PANTOPRAZOLE SODIUM

REACTIONS (2)
  - Anaphylactic shock [Recovering/Resolving]
  - Product substitution issue [Recovering/Resolving]

NARRATIVE: CASE EVENT DATE: 20200404
